FAERS Safety Report 24376831 (Version 1)
Quarter: 2024Q3

REPORT INFORMATION
  Report Type: Spontaneous
  Country: US (occurrence: US)
  Receive Date: 20240930
  Receipt Date: 20240930
  Transmission Date: 20241017
  Serious: No
  Sender: SANOFI AVENTIS
  Company Number: US-SA-2024SA278990

PATIENT
  Sex: Male

DRUGS (12)
  1. DUPIXENT [Suspect]
     Active Substance: DUPILUMAB
     Indication: Eosinophilic oesophagitis
     Dosage: 300 MG, QW
     Route: 058
     Dates: start: 20231212
  2. MANTADINE [Concomitant]
  3. ARMODAFINIL [Concomitant]
     Active Substance: ARMODAFINIL
  4. CITALOPRAM [Concomitant]
     Active Substance: CITALOPRAM
  5. CLONIDINE [Concomitant]
     Active Substance: CLONIDINE
  6. ESCITALOPRAM [Concomitant]
     Active Substance: ESCITALOPRAM OXALATE
  7. GUANFACINE [Concomitant]
     Active Substance: GUANFACINE
  8. JORNAY PM EXTENDED-RELEASE [Concomitant]
     Active Substance: METHYLPHENIDATE HYDROCHLORIDE
  9. LAMICTAL [Concomitant]
     Active Substance: LAMOTRIGINE
  10. LAMOTRIGINE [Concomitant]
     Active Substance: LAMOTRIGINE
  11. MEMANTINE HYDROCHLORIDE [Concomitant]
     Active Substance: MEMANTINE HYDROCHLORIDE
  12. METHYLPHENIDATE HYDROCHLORIDE [Concomitant]
     Active Substance: METHYLPHENIDATE HYDROCHLORIDE

REACTIONS (2)
  - Impaired quality of life [Not Recovered/Not Resolved]
  - Drug ineffective [Unknown]
